FAERS Safety Report 10360913 (Version 2)
Quarter: 2014Q3

REPORT INFORMATION
  Report Type: Spontaneous
  Country: FR (occurrence: FR)
  Receive Date: 20140804
  Receipt Date: 20140805
  Transmission Date: 20150326
  Serious: Yes (Death, Hospitalization, Other)
  Sender: FDA-Public Use
  Company Number: FR-PFIZER INC-2014214267

PATIENT
  Age: 46 Year
  Sex: Male

DRUGS (11)
  1. XANAX [Suspect]
     Active Substance: ALPRAZOLAM
     Dosage: 0.50 MG, 3X/DAY
     Route: 048
     Dates: end: 20140604
  2. LEPTICUR [Suspect]
     Active Substance: TROPATEPINE HYDROCHLORIDE
     Dosage: 10 MG, 3X/DAY
     Route: 048
     Dates: start: 20140604, end: 20140604
  3. ZELITREX [Concomitant]
     Active Substance: VALACYCLOVIR HYDROCHLORIDE
     Dosage: 1 DF, 2X/DAY
  4. EUPANTOL [Concomitant]
     Active Substance: PANTOPRAZOLE SODIUM
     Dosage: 40 MG, 1X/DAY
     Dates: end: 20140603
  5. SPECIAFOLDINE [Concomitant]
     Active Substance: FOLIC ACID
     Dosage: 1 DF, THRICE WEEKLY
  6. NOCTAMID [Suspect]
     Active Substance: LORMETAZEPAM
     Dosage: 2 MG, 1X/DAY
     Route: 048
     Dates: end: 20140604
  7. FRAXIPARINE [Concomitant]
     Active Substance: NADROPARIN CALCIUM
     Indication: THROMBOSIS PROPHYLAXIS
     Dosage: 2850 IU, 1X/DAY
     Dates: start: 20140531, end: 20140604
  8. RISPERDAL [Suspect]
     Active Substance: RISPERIDONE
     Dosage: 4 MG, 1X/DAY
     Route: 048
     Dates: end: 20140530
  9. BACTRIM [Concomitant]
     Active Substance: SULFAMETHOXAZOLE\TRIMETHOPRIM
     Dosage: 1 DF, THRICE WEEKLY
  10. SPAGULAX [Concomitant]
     Active Substance: PLANTAGO OVATA SEED
     Dosage: 1 DF, 1X/DAY
  11. HALDOL [Suspect]
     Active Substance: HALOPERIDOL
     Dosage: 25 DROPS IN THE MORNING AND AT MIDDAY AND 50 DROPS IN THE EVENING
     Route: 048
     Dates: start: 20140602, end: 20140604

REACTIONS (9)
  - Fall [Unknown]
  - Malaise [Unknown]
  - Thrombocytopenia [Unknown]
  - Cardiac arrest [Fatal]
  - Cardio-respiratory arrest [Fatal]
  - Fatigue [Unknown]
  - Pain [Unknown]
  - Mutism [Unknown]
  - Psychiatric decompensation [Unknown]

NARRATIVE: CASE EVENT DATE: 2014
